FAERS Safety Report 9114871 (Version 1)
Quarter: 2013Q1

REPORT INFORMATION
  Report Type: Spontaneous
  Country: US (occurrence: None)
  Receive Date: 20130220
  Receipt Date: 20130220
  Transmission Date: 20140127
  Serious: Yes (Hospitalization)
  Sender: FDA-Public Use
  Company Number: None

PATIENT
  Age: 73 Year
  Sex: Female
  Weight: 73.94 kg

DRUGS (3)
  1. VANCOMYCIN [Suspect]
     Indication: SINUSITIS
     Dosage: 1 VIAL   2 TIMES DAILY   IV DRIP?12/06/2012  --  12/29/2012
     Route: 041
     Dates: start: 20121206, end: 20121229
  2. VANCOMYCIN [Suspect]
     Indication: STREPTOCOCCAL INFECTION
     Dosage: 1 VIAL   2 TIMES DAILY   IV DRIP?12/06/2012  --  12/29/2012
     Route: 041
     Dates: start: 20121206, end: 20121229
  3. CUBICIN [Suspect]
     Dosage: 1 VIAL    1 TIME DAILY   IV DRIP?01/02/2013  --  01/05/2013
     Route: 041
     Dates: start: 20130102, end: 20130105

REACTIONS (15)
  - Pyrexia [None]
  - Chills [None]
  - Diarrhoea [None]
  - Rash [None]
  - Urticaria [None]
  - Pruritus [None]
  - Dysstasia [None]
  - Red man syndrome [None]
  - Swelling [None]
  - Hypotension [None]
  - Dehydration [None]
  - Asthenia [None]
  - Haemoglobin decreased [None]
  - Feeling abnormal [None]
  - Apparent death [None]
